FAERS Safety Report 25715178 (Version 1)
Quarter: 2025Q3

REPORT INFORMATION
  Report Type: Spontaneous
  Country: US (occurrence: None)
  Receive Date: 20250821
  Receipt Date: 20250821
  Transmission Date: 20251021
  Serious: Yes (Death)
  Sender: FDA-CTU
  Company Number: None

PATIENT
  Sex: Male

DRUGS (7)
  1. DROXIDOPA [Suspect]
     Active Substance: DROXIDOPA
     Indication: Autonomic nervous system imbalance
     Route: 050
     Dates: start: 20240305
  2. CLONAZEPAM TAB1MG [Concomitant]
  3. MIRTAZAPINE TAB 45MG [Concomitant]
  4. RYTARY CAP 145MG [Concomitant]
  5. SIMVASTATIN [Concomitant]
     Active Substance: SIMVASTATIN
  6. SINEMET TAB 25-100MG [Concomitant]
  7. WELLBUTRIN TAB XL 300MG [Concomitant]

REACTIONS (1)
  - Death [None]
